FAERS Safety Report 17583099 (Version 5)
Quarter: 2021Q1

REPORT INFORMATION
  Report Type: Spontaneous
  Country: PL (occurrence: PL)
  Receive Date: 20200325
  Receipt Date: 20210216
  Transmission Date: 20210419
  Serious: Yes (Death, Life-Threatening, Hospitalization, Congenital Anomaly, Other)
  Sender: FDA-Public Use
  Company Number: PL-AUROBINDO-AUR-APL-2020-015616

PATIENT
  Age: 30 Week
  Sex: Female
  Weight: 1.13 kg

DRUGS (3)
  1. ROSUVASTATIN FILM COATED TABLETS [Suspect]
     Active Substance: ROSUVASTATIN
     Indication: PRODUCT USED FOR UNKNOWN INDICATION
     Dosage: UNK
     Route: 064
  2. ROSUVASTATIN. [Suspect]
     Active Substance: ROSUVASTATIN
     Indication: PRODUCT USED FOR UNKNOWN INDICATION
     Dosage: UNK
     Route: 048
  3. IBUPROFEN. [Suspect]
     Active Substance: IBUPROFEN
     Indication: PRODUCT USED FOR UNKNOWN INDICATION
     Dosage: UNK
     Route: 064

REACTIONS (18)
  - Foetal exposure during pregnancy [Unknown]
  - Neonatal asphyxia [Fatal]
  - Exposure during pregnancy [Unknown]
  - Respiratory distress [Unknown]
  - Premature baby [Unknown]
  - Oligohydramnios [Unknown]
  - Body mass index decreased [Unknown]
  - Transaminases increased [Unknown]
  - Foetal heart rate deceleration abnormality [Unknown]
  - Acute kidney injury [Recovered/Resolved]
  - Jaundice [Unknown]
  - Cardiovascular insufficiency [Fatal]
  - Anuria [Fatal]
  - Foetal acidosis [Unknown]
  - Respiratory failure [Fatal]
  - Fatigue [Unknown]
  - Laboratory test abnormal [Unknown]
  - Anaemia [Unknown]
